FAERS Safety Report 4620973-1 (Version None)
Quarter: 2005Q2

REPORT INFORMATION
  Report Type: 
  Country: None (occurrence: None)
  Receive Date: 20050315
  Receipt Date: 20050217
  Transmission Date: 20051028
  Serious: No
  Sender: FDA-Public Use
  Company Number: US-YAMANOUCHI-YPA20050070

PATIENT
  Sex: Male

DRUGS (6)
  1. VESICARE [Suspect]
     Indication: HYPERTONIC BLADDER
     Dosage: 5 MG DAILY PO
     Route: 048
     Dates: start: 20050131, end: 20050210
  2. DETROL - SLOW RELEASE [Concomitant]
  3. DITROPAN [Concomitant]
  4. OXYTROL [Concomitant]
  5. DDAVP [Concomitant]
  6. IMPRAMINE HCL [Concomitant]

REACTIONS (1)
  - TREMOR [None]
